FAERS Safety Report 11637377 (Version 1)
Quarter: 2015Q4

REPORT INFORMATION
  Report Type: Spontaneous
  Country: GB (occurrence: GB)
  Receive Date: 20151016
  Receipt Date: 20151016
  Transmission Date: 20160304
  Serious: Yes (Hospitalization)
  Sender: FDA-Public Use
  Company Number: GB-009507513-1510GBR005002

PATIENT
  Age: 34 Year
  Sex: Female

DRUGS (5)
  1. SENOKOT (SENNOSIDES) [Concomitant]
     Indication: IRRITABLE BOWEL SYNDROME
     Dosage: UNK
  2. OMEPRAZOLE. [Concomitant]
     Active Substance: OMEPRAZOLE
     Dosage: UNK
     Route: 048
  3. NEXPLANON [Suspect]
     Active Substance: ETONOGESTREL
     Dosage: UNK
     Route: 059
  4. NEXPLANON [Suspect]
     Active Substance: ETONOGESTREL
     Dosage: UNK
     Route: 059
  5. NEXPLANON [Suspect]
     Active Substance: ETONOGESTREL
     Dosage: UNK
     Route: 059
     Dates: start: 20150202

REACTIONS (7)
  - Panic attack [Unknown]
  - Abdominal distension [Unknown]
  - Implant site pain [Unknown]
  - Headache [Unknown]
  - Implant site hypoaesthesia [Unknown]
  - Abdominal pain lower [Unknown]
  - Anxiety [Unknown]

NARRATIVE: CASE EVENT DATE: 2015
